FAERS Safety Report 5703026-0 (Version None)
Quarter: 2008Q2

REPORT INFORMATION
  Report Type: 
  Country: None (occurrence: None)
  Receive Date: 20080411
  Receipt Date: 20080408
  Transmission Date: 20081010
  Serious: Yes (Other)
  Sender: FDA-Public Use
  Company Number: ES-BRISTOL-MYERS SQUIBB COMPANY-14145668

PATIENT
  Age: 67 Year
  Sex: Female

DRUGS (6)
  1. TAXOL [Suspect]
     Indication: BREAST CANCER
     Route: 042
     Dates: start: 20080103, end: 20080214
  2. HERCEPTIN [Suspect]
     Indication: BREAST CANCER
     Route: 042
     Dates: start: 20080103
  3. RANITIDINE [Concomitant]
     Indication: PREMEDICATION
     Dates: start: 20080103, end: 20080214
  4. DEXAMETHASONE [Concomitant]
     Indication: PREMEDICATION
     Dates: start: 20080103, end: 20080214
  5. DEXCHLORPHENIRAMINE [Concomitant]
     Indication: PREMEDICATION
     Dates: start: 20080103, end: 20080214
  6. ONDANSETRON [Concomitant]
     Indication: PREMEDICATION
     Dates: start: 20080103, end: 20080214

REACTIONS (2)
  - CAUSTIC INJURY [None]
  - NEUROPATHY PERIPHERAL [None]
